FAERS Safety Report 23451339 (Version 1)
Quarter: 2024Q1

REPORT INFORMATION
  Report Type: Spontaneous
  Country: US (occurrence: None)
  Receive Date: 20240126
  Receipt Date: 20240126
  Transmission Date: 20240410
  Serious: Yes (Hospitalization)
  Sender: FDA-Public Use
  Company Number: None

PATIENT
  Age: 56 Year
  Sex: Female

DRUGS (7)
  1. VELTASSA [Suspect]
     Active Substance: PATIROMER
     Indication: Hyperkalaemia
     Dates: start: 20231227, end: 20240115
  2. JARDIANCE [Concomitant]
     Active Substance: EMPAGLIFLOZIN
  3. BUMETANIDE [Concomitant]
     Active Substance: BUMETANIDE
  4. GABAPENTIN [Concomitant]
  5. MOUNJARO [Concomitant]
     Active Substance: TIRZEPATIDE
  6. NIFEDIPINE [Concomitant]
  7. HYDROCHLROTHIAZIDE [Concomitant]

REACTIONS (3)
  - Dehydration [None]
  - Constipation [None]
  - Therapy cessation [None]

NARRATIVE: CASE EVENT DATE: 20240115
